FAERS Safety Report 6904785-1 (Version None)
Quarter: 2010Q3

REPORT INFORMATION
  Report Type: 
  Country: None (occurrence: None)
  Receive Date: 20100804
  Receipt Date: 20090708
  Transmission Date: 20110219
  Serious: Yes (Other)
  Sender: FDA-Public Use
  Company Number: US-PFIZER INC-2009239294

PATIENT
  Sex: Female
  Weight: 58.957 kg

DRUGS (7)
  1. LYRICA [Suspect]
     Indication: RESTLESS LEGS SYNDROME
     Dosage: 150 MG, 1X/DAY
     Route: 048
     Dates: start: 20060101
  2. LYRICA [Suspect]
     Indication: FIBROMYALGIA
  3. METFORMIN/PIOGLITAZONE [Concomitant]
     Indication: DIABETES MELLITUS
     Dosage: 15/850 MG TWO TIMES DAILY
     Dates: start: 20070101
  4. SITAGLIPTIN [Concomitant]
     Indication: DIABETES MELLITUS
     Dosage: 100 MG, 1X/DAY
     Dates: start: 20080101
  5. NEXIUM [Concomitant]
     Indication: ILL-DEFINED DISORDER
     Dosage: 40 MG, 1X/DAY
  6. KLONOPIN [Concomitant]
     Dosage: 0.5 MG, 2X/DAY
  7. HYDROCODONE BITARTRATE [Concomitant]
     Indication: PAIN
     Dosage: 10/500MG TWO TIMES DAILY

REACTIONS (6)
  - BLADDER SPASM [None]
  - BLOOD CHOLESTEROL INCREASED [None]
  - BLOOD GLUCOSE INCREASED [None]
  - BLOOD TRIGLYCERIDES INCREASED [None]
  - FLUID RETENTION [None]
  - WEIGHT INCREASED [None]
